FAERS Safety Report 9611551 (Version 1)
Quarter: 2013Q4

REPORT INFORMATION
  Report Type: Spontaneous
  Country: FR (occurrence: FR)
  Receive Date: 20131010
  Receipt Date: 20131010
  Transmission Date: 20140711
  Serious: Yes (Hospitalization)
  Sender: FDA-Public Use
  Company Number: FR-ROCHE-1285712

PATIENT
  Age: 60 Year
  Sex: Female

DRUGS (5)
  1. AVASTIN [Suspect]
     Indication: COLORECTAL CANCER METASTATIC
     Route: 042
     Dates: start: 201303, end: 20130909
  2. MICROLAX (FRANCE) [Concomitant]
  3. LANSOYL [Concomitant]
  4. 5-FLUOROURACIL [Concomitant]
     Route: 065
     Dates: start: 201303
  5. OXALIPLATIN [Concomitant]
     Route: 065
     Dates: start: 201303

REACTIONS (2)
  - Intestinal obstruction [Recovered/Resolved with Sequelae]
  - Intestinal perforation [Recovered/Resolved with Sequelae]
